FAERS Safety Report 9490703 (Version 1)
Quarter: 2013Q3

REPORT INFORMATION
  Report Type: Spontaneous
  Country: US (occurrence: None)
  Receive Date: 20130828
  Receipt Date: 20130828
  Transmission Date: 20140515
  Serious: Yes (Hospitalization)
  Sender: FDA-Public Use
  Company Number: None

PATIENT
  Age: 60 Year
  Sex: Female
  Weight: 65.68 kg

DRUGS (9)
  1. CABOZANTINIB [Suspect]
     Indication: BREAST CANCER METASTATIC
     Dosage: 60 MG DAILY PO
     Route: 048
     Dates: start: 20120717, end: 20120829
  2. ALPRAZOLAM [Concomitant]
  3. CHLORHEXIDINE GLUCONATE [Concomitant]
  4. CLONAZEPAM [Concomitant]
  5. LORAZEPAM [Concomitant]
  6. NYSTATIN [Concomitant]
  7. PROCHLORPERAZINE MALEATE [Concomitant]
  8. VENLAFAXINE [Concomitant]
  9. ZOLEDRONIC ACID [Concomitant]

REACTIONS (6)
  - Headache [None]
  - Fatigue [None]
  - Musculoskeletal pain [None]
  - Musculoskeletal chest pain [None]
  - Back pain [None]
  - Metastases to meninges [None]
